FAERS Safety Report 19197861 (Version 1)
Quarter: 2021Q2

REPORT INFORMATION
  Report Type: Spontaneous
  Country: GB (occurrence: GB)
  Receive Date: 20210429
  Receipt Date: 20210429
  Transmission Date: 20210717
  Serious: Yes (Other)
  Sender: FDA-Public Use
  Company Number: GB-ALLERGAN-2116657US

PATIENT
  Sex: Male

DRUGS (11)
  1. MEDIDERM [Concomitant]
     Dosage: AS DIRECTED
     Dates: start: 20210302
  2. MEMANTINE HCL ? BP [Suspect]
     Active Substance: MEMANTINE
     Indication: MUSCULAR WEAKNESS
     Dosage: 10 MG
     Route: 048
  3. MELATONIN [Concomitant]
     Active Substance: MELATONIN
     Dosage: TO BE TAKEN AT NIGHT, 2 MG, QD
     Dates: start: 20210122
  4. ASPIRINA [Concomitant]
     Active Substance: ASPIRIN
     Dosage: WITH FOOD, 75 MG,QD
     Dates: start: 20210128
  5. ATORVASTATIN [Concomitant]
     Active Substance: ATORVASTATIN
     Dosage: 10 MG, QD
     Dates: start: 20210121
  6. TIMOLOL. [Concomitant]
     Active Substance: TIMOLOL
     Dosage: 2 DF, QD
     Dates: start: 20210128
  7. FINASTERIDE. [Concomitant]
     Active Substance: FINASTERIDE
     Dosage: 5 MG, QD
     Dates: start: 20210128
  8. BRIMONIDINE [Concomitant]
     Active Substance: BRIMONIDINE TARTRATE
     Dosage: 2 DF, QD
     Route: 047
     Dates: start: 20210128
  9. TAMSULOSIN [Concomitant]
     Active Substance: TAMSULOSIN
     Dosage: 400 ?G, QD
     Dates: start: 20210128
  10. MEMANTINE HCL ? BP [Suspect]
     Active Substance: MEMANTINE
     Dosage: 5 MG
  11. BIMATOPROST. [Concomitant]
     Active Substance: BIMATOPROST
     Dosage: DROP INTO AFFECTED EYE(S) ONCE IN THE EVENING, 1 GTT
     Route: 047
     Dates: start: 20210128

REACTIONS (2)
  - Depressive symptom [Not Recovered/Not Resolved]
  - Product use in unapproved indication [Unknown]

NARRATIVE: CASE EVENT DATE: 20210409
